FAERS Safety Report 10331127 (Version 1)
Quarter: 2014Q3

REPORT INFORMATION
  Report Type: Spontaneous
  Country: US (occurrence: US)
  Receive Date: 20140722
  Receipt Date: 20140722
  Transmission Date: 20150326
  Serious: Yes (Other)
  Sender: FDA-Public Use
  Company Number: US-TEVA-496061USA

PATIENT
  Sex: Female

DRUGS (1)
  1. PARAGARD T380A [Suspect]
     Active Substance: COPPER
     Indication: CONTRACEPTION
     Route: 015
     Dates: end: 201401

REACTIONS (3)
  - Embedded device [Unknown]
  - Device breakage [Unknown]
  - Expired device used [Recovered/Resolved]

NARRATIVE: CASE EVENT DATE: 201401
